FAERS Safety Report 5058613-2 (Version None)
Quarter: 2006Q2

REPORT INFORMATION
  Report Type: 
  Country: None (occurrence: None)
  Receive Date: 20060627
  Receipt Date: 20060414
  Transmission Date: 20061013
  Serious: Yes (Death)
  Sender: FDA-Public Use
  Company Number: 444604

PATIENT
  Age: 67 Year
  Sex: Female
  Weight: 53.5 kg

DRUGS (6)
  1. XELODA [Suspect]
     Indication: COLON CANCER
     Dosage: 1500 MG 2 PER DAY ORAL
     Route: 048
     Dates: start: 20051130, end: 20060322
  2. DURAGESIC-100 [Concomitant]
  3. METOPROLOL (METOPROLOL) [Concomitant]
  4. LIPITOR [Concomitant]
  5. IRON (IRON NOS) [Concomitant]
  6. DIGOXIN [Concomitant]

REACTIONS (1)
  - DEATH [None]
